FAERS Safety Report 18534660 (Version 1)
Quarter: 2020Q4

REPORT INFORMATION
  Report Type: Spontaneous
  Country: US (occurrence: US)
  Receive Date: 20201123
  Receipt Date: 20201123
  Transmission Date: 20210114
  Serious: Yes (Other)
  Sender: FDA-Public Use
  Company Number: US-ELI_LILLY_AND_COMPANY-US202011009637

PATIENT

DRUGS (1)
  1. QUINIDINE GLUCONATE. [Suspect]
     Active Substance: QUINIDINE GLUCONATE
     Indication: PRODUCT USED FOR UNKNOWN INDICATION
     Dosage: 9.1 MG/KG, OTHER
     Route: 042

REACTIONS (5)
  - Ventricular extrasystoles [Unknown]
  - Blood pressure decreased [Unknown]
  - Atrioventricular block first degree [Unknown]
  - Bundle branch block left [Unknown]
  - Bundle branch block right [Unknown]
